FAERS Safety Report 9239490 (Version 1)
Quarter: 2013Q2

REPORT INFORMATION
  Report Type: Spontaneous
  Country: TW (occurrence: TW)
  Receive Date: 20130418
  Receipt Date: 20130418
  Transmission Date: 20140414
  Serious: Yes (Hospitalization)
  Sender: FDA-Public Use
  Company Number: TW-ROXANE LABORATORIES, INC.-2013-RO-00482RO

PATIENT
  Age: 45 Year
  Sex: Male

DRUGS (4)
  1. METHOTREXATE [Suspect]
     Indication: PROPHYLAXIS AGAINST GRAFT VERSUS HOST DISEASE
  2. CYCLOPHOSPHAMIDE TABLETS USP [Suspect]
     Indication: BONE MARROW CONDITIONING REGIMEN
  3. CYCLOSPORINE [Suspect]
     Indication: PROPHYLAXIS AGAINST GRAFT VERSUS HOST DISEASE
  4. TRIMETHOPRIM-SULFAMETHOXAZOLE [Suspect]
     Indication: INFECTION PROPHYLAXIS

REACTIONS (2)
  - Pericardial effusion [Recovered/Resolved]
  - Cardiac tamponade [Recovered/Resolved]
